FAERS Safety Report 5922040-3 (Version None)
Quarter: 2008Q4

REPORT INFORMATION
  Report Type: 
  Country: None (occurrence: None)
  Receive Date: 20081017
  Receipt Date: 20081010
  Transmission Date: 20090506
  Serious: Yes (Death, Hospitalization)
  Sender: FDA-Public Use
  Company Number: A0752414A

PATIENT
  Age: 60 Year
  Sex: Male
  Weight: 84.1 kg

DRUGS (13)
  1. AVANDIA [Suspect]
     Indication: DIABETES MELLITUS
     Dosage: 8MG TWICE PER DAY
     Route: 048
     Dates: start: 20001229, end: 20060805
  2. GLUCOPHAGE [Concomitant]
  3. METFORMIN HYDROCHLORIDE [Concomitant]
  4. GLUCOTROL XL [Concomitant]
  5. METOPROLOL TARTRATE [Concomitant]
  6. LIPITOR [Concomitant]
  7. PREDNISONE TAB [Concomitant]
  8. FLUOXETINE [Concomitant]
  9. DIGITEK [Concomitant]
  10. PROTONIX [Concomitant]
  11. PREVACID [Concomitant]
  12. ENALAPRIL MALEATE [Concomitant]
  13. METAGLIP [Concomitant]

REACTIONS (2)
  - DEATH [None]
  - MYOCARDIAL INFARCTION [None]
